FAERS Safety Report 8225343-5 (Version None)
Quarter: 2012Q1

REPORT INFORMATION
  Report Type: 
  Country: None (occurrence: None)
  Receive Date: 20120321
  Receipt Date: 20120208
  Transmission Date: 20120608
  Serious: Yes (Hospitalization)
  Sender: FDA-Public Use
  Company Number: JP-GLAXOSMITHKLINE-B0780761A

PATIENT
  Sex: Male

DRUGS (4)
  1. LAMICTAL [Suspect]
     Indication: BIPOLAR DISORDER
     Dosage: 4IUAX PER DAY
     Route: 048
     Dates: start: 20120119, end: 20120130
  2. LENDORMIN [Concomitant]
     Dosage: .25MG PER DAY
     Route: 048
     Dates: start: 20120118
  3. DEPAKENE [Concomitant]
     Dosage: 2IUAX PER DAY
     Route: 048
     Dates: start: 20120118
  4. ALPRAZOLAM [Concomitant]
     Dosage: 3IUAX PER DAY
     Route: 048
     Dates: start: 20120118

REACTIONS (5)
  - LYMPHOCYTE MORPHOLOGY ABNORMAL [None]
  - HEPATIC FUNCTION ABNORMAL [None]
  - EOSINOPHIL COUNT INCREASED [None]
  - DRUG ERUPTION [None]
  - PERIVASCULAR DERMATITIS [None]
